FAERS Safety Report 9422578 (Version 1)
Quarter: 2013Q3

REPORT INFORMATION
  Report Type: Spontaneous
  Country: JP (occurrence: JP)
  Receive Date: 20130726
  Receipt Date: 20130726
  Transmission Date: 20140515
  Serious: Yes (Death, Other)
  Sender: FDA-Public Use
  Company Number: JP-BAXTER-2013BAX029138

PATIENT
  Age: 15 Year
  Sex: Female

DRUGS (1)
  1. ENDOXAN 1G [Suspect]
     Indication: BONE MARROW TRANSPLANT
     Route: 065

REACTIONS (3)
  - Death [Fatal]
  - Circulatory collapse [Recovering/Resolving]
  - Cardiomyopathy [Recovering/Resolving]
